FAERS Safety Report 5859370-X (Version None)
Quarter: 2008Q3

REPORT INFORMATION
  Report Type: 
  Country: None (occurrence: None)
  Receive Date: 20080825
  Receipt Date: 20080813
  Transmission Date: 20090109
  Serious: Yes (Hospitalization)
  Sender: FDA-Public Use
  Company Number: 002063

PATIENT
  Age: 53 Year
  Sex: Female

DRUGS (6)
  1. BUSULFEX [Suspect]
     Indication: STEM CELL TRANSPLANT
     Dosage: 30 ML, DAILY DOSE INTRAVENOUS
     Route: 042
     Dates: start: 20070515, end: 20070516
  2. PHENYTOIN [Concomitant]
  3. METHOTREXATE [Concomitant]
  4. TACROLIMUS [Concomitant]
  5. CYCLOPHOSPHAMIDE [Concomitant]
  6. FILGRASTIM (FILGRASTIM) [Concomitant]

REACTIONS (3)
  - DIARRHOEA [None]
  - PSEUDOMONAL SEPSIS [None]
  - STOMATITIS [None]
